FAERS Safety Report 6677125-3 (Version None)
Quarter: 2010Q2

REPORT INFORMATION
  Report Type: 
  Country: None (occurrence: None)
  Receive Date: 20100412
  Receipt Date: 20100211
  Transmission Date: 20101027
  Serious: Yes (Other)
  Sender: FDA-Public Use
  Company Number: RU-BAYER-201013654GPV

PATIENT
  Age: 52 Year
  Sex: Female

DRUGS (1)
  1. BETAFERON [Suspect]
     Indication: MULTIPLE SCLEROSIS
     Route: 058
     Dates: start: 20090615

REACTIONS (5)
  - ANGINA PECTORIS [None]
  - BLOOD THYROID STIMULATING HORMONE INCREASED [None]
  - CONDUCTION DISORDER [None]
  - THYROID DISORDER [None]
  - ULTRASOUND THYROID ABNORMAL [None]
